FAERS Safety Report 10051659 (Version 1)
Quarter: 2014Q2

REPORT INFORMATION
  Report Type: Report from Study
  Country: US (occurrence: US)
  Receive Date: 20140401
  Receipt Date: 20140401
  Transmission Date: 20141212
  Serious: Yes (Hospitalization, Other)
  Sender: FDA-Public Use
  Company Number: US-ABBVIE-14P-163-1215977-00

PATIENT
  Age: 14 Year
  Sex: Male
  Weight: 71.3 kg

DRUGS (5)
  1. HUMIRA [Suspect]
     Indication: CROHN^S DISEASE
     Dates: start: 201305
  2. HUMIRA [Suspect]
     Dates: start: 20130614, end: 20130614
  3. HUMIRA [Suspect]
     Dates: start: 20130827
  4. HUMIRA [Suspect]
     Dates: start: 20130910
  5. ZOLOFT [Concomitant]
     Indication: DEPRESSION

REACTIONS (14)
  - Intestinal obstruction [Recovered/Resolved]
  - Appendicitis [Recovered/Resolved]
  - Infection [Recovered/Resolved]
  - Off label use [Not Recovered/Not Resolved]
  - Injection site pain [Not Recovered/Not Resolved]
  - Injection site pain [Unknown]
  - Abdominal pain [Recovered/Resolved]
  - Intestinal mucosal hypertrophy [Recovered/Resolved]
  - Enteritis [Recovered/Resolved]
  - Localised intraabdominal fluid collection [Recovered/Resolved]
  - Ileus [Recovered/Resolved]
  - Nausea [Recovered/Resolved]
  - Vomiting [Recovered/Resolved]
  - Crohn^s disease [Unknown]
